FAERS Safety Report 19990498 (Version 1)
Quarter: 2021Q4

REPORT INFORMATION
  Report Type: Spontaneous
  Country: GB (occurrence: GB)
  Receive Date: 20211025
  Receipt Date: 20211025
  Transmission Date: 20220303
  Serious: Yes (Other)
  Sender: FDA-Public Use
  Company Number: None

PATIENT
  Age: 50 Year
  Sex: Female
  Weight: 71.66 kg

DRUGS (6)
  1. OMEPRAZOLE [Suspect]
     Active Substance: OMEPRAZOLE
     Indication: Gastrooesophageal reflux disease
     Dates: start: 20210401, end: 20211001
  2. CLONAZEPAM [Suspect]
     Active Substance: CLONAZEPAM
  3. CO-DYDRAMOL [Concomitant]
     Active Substance: ACETAMINOPHEN\DIHYDROCODEINE
  4. EPILIM [Suspect]
     Active Substance: VALPROATE SODIUM
  5. GABAPENTIN [Suspect]
     Active Substance: GABAPENTIN
  6. UNSPECIFIED INGREDIENT [Concomitant]
     Active Substance: UNSPECIFIED INGREDIENT
     Indication: Hormone replacement therapy

REACTIONS (1)
  - Alopecia [Not Recovered/Not Resolved]
